FAERS Safety Report 8951244 (Version 4)
Quarter: 2013Q3

REPORT INFORMATION
  Report Type: Spontaneous
  Country: US (occurrence: US)
  Receive Date: 20121207
  Receipt Date: 20130716
  Transmission Date: 20140515
  Serious: Yes (Hospitalization)
  Sender: FDA-Public Use
  Company Number: US-BIOGENIDEC-2012BI056602

PATIENT
  Age: 52 Year
  Sex: Female

DRUGS (10)
  1. TYSABRI [Suspect]
     Indication: MULTIPLE SCLEROSIS
     Route: 042
     Dates: start: 20061212, end: 20090929
  2. TYSABRI [Suspect]
     Indication: MULTIPLE SCLEROSIS
     Route: 042
     Dates: start: 20100216, end: 20121018
  3. TRAZODONE [Concomitant]
     Indication: SLEEP DISORDER
  4. ALPRAZOLAM [Concomitant]
     Indication: ANXIETY
  5. FLUOXETINE [Concomitant]
     Indication: DEPRESSION
  6. SIMVASTATIN [Concomitant]
     Indication: BLOOD CHOLESTEROL
  7. COLACE [Concomitant]
     Indication: CONSTIPATION
  8. CALCIUM WITH VITAMIN D [Concomitant]
  9. OXYCODONE HCL [Concomitant]
     Indication: PAIN
  10. RITALIN SR [Concomitant]
     Indication: FATIGUE

REACTIONS (3)
  - Squamous cell carcinoma of the vulva [Recovered/Resolved]
  - Skin mass [Recovered/Resolved]
  - Asthenia [Not Recovered/Not Resolved]
